FAERS Safety Report 11096204 (Version 1)
Quarter: 2015Q2

REPORT INFORMATION
  Report Type: Spontaneous
  Country: US (occurrence: None)
  Receive Date: 20150506
  Receipt Date: 20150506
  Transmission Date: 20150821
  Serious: No
  Sender: FDA-Public Use
  Company Number: None

PATIENT
  Age: 11 Year
  Sex: Male
  Weight: 43.09 kg

DRUGS (8)
  1. OMEGA-3 + VITAMIN D3 [Concomitant]
  2. FLUTICASONE PROPIONATE. [Suspect]
     Active Substance: FLUTICASONE PROPIONATE
     Indication: MULTIPLE ALLERGIES
     Dosage: 2 PUFFS DAILY, AS NEEDED, TAKEN BY MOUTH
     Route: 048
     Dates: start: 20150209, end: 20150505
  3. ALBUTEROL SULFATE. [Suspect]
     Active Substance: ALBUTEROL SULFATE
     Indication: MULTIPLE ALLERGIES
     Dosage: 2 PUFFS BEFORE VISIT W/ANIMALS, 2 PUFFS W/ANIMALS, TAKEN BY MOUTH
     Route: 048
     Dates: start: 20120814, end: 20150505
  4. GUMMY VITAMIN S DISNEY^S [Concomitant]
  5. MONTELUKAST [Concomitant]
     Active Substance: MONTELUKAST SODIUM
  6. EQUATE CHILDRENS ALLERGY RELIEF [Concomitant]
     Active Substance: CETIRIZINE HYDROCHLORIDE\LORATADINE
  7. LORATADINE. [Concomitant]
     Active Substance: LORATADINE
  8. INHALER W/ SPACER [Concomitant]

REACTIONS (6)
  - Chest pain [None]
  - Oropharyngeal pain [None]
  - Cough [None]
  - Headache [None]
  - Dizziness [None]
  - Epistaxis [None]

NARRATIVE: CASE EVENT DATE: 20150504
